FAERS Safety Report 5211651-9 (Version None)
Quarter: 2007Q1

REPORT INFORMATION
  Report Type: 
  Country: None (occurrence: None)
  Receive Date: 20070116
  Receipt Date: 20070116
  Transmission Date: 20070707
  Serious: Yes (Death)
  Sender: FDA-Public Use
  Company Number: None

PATIENT
  Sex: Female
  Weight: 49.8957 kg

DRUGS (1)
  1. CYMBALTA [Suspect]
     Indication: DEPRESSION
     Dosage: 60 MG 1 TIME A DAY PO
     Route: 048
     Dates: start: 20060429, end: 20061001

REACTIONS (5)
  - ABNORMAL BEHAVIOUR [None]
  - COMPLETED SUICIDE [None]
  - FEELING ABNORMAL [None]
  - INJURY ASPHYXIATION [None]
  - SOCIAL AVOIDANT BEHAVIOUR [None]
